FAERS Safety Report 10507539 (Version 2)
Quarter: 2014Q4

REPORT INFORMATION
  Report Type: Spontaneous
  Country: US (occurrence: US)
  Receive Date: 20141009
  Receipt Date: 20141201
  Transmission Date: 20150528
  Serious: No
  Sender: FDA-Public Use
  Company Number: US-PFIZER INC-2014275102

PATIENT
  Age: 42 Year
  Sex: Female
  Weight: 70.3 kg

DRUGS (5)
  1. ATIVAN [Concomitant]
     Active Substance: LORAZEPAM
     Indication: ANXIETY
     Dosage: 1 MG, AS NEEDED
  2. RELPAX [Suspect]
     Active Substance: ELETRIPTAN HYDROBROMIDE
     Indication: MIGRAINE
     Dosage: UNK
     Dates: start: 201409
  3. ADVIL [Concomitant]
     Active Substance: IBUPROFEN
     Dosage: 200 MG, 2X/DAY
  4. CODEINE [Concomitant]
     Active Substance: CODEINE
     Dosage: 30 MG, 2X/DAY
  5. FIORICET W/CODEINE [Concomitant]
     Indication: MIGRAINE
     Dosage: 1 DF, AS NEEDED

REACTIONS (1)
  - Drug ineffective [Unknown]
